FAERS Safety Report 20206267 (Version 1)
Quarter: 2021Q4

REPORT INFORMATION
  Report Type: Spontaneous
  Country: BR (occurrence: BR)
  Receive Date: 20211220
  Receipt Date: 20211220
  Transmission Date: 20220303
  Serious: Yes (Other)
  Sender: FDA-Public Use
  Company Number: BR-GSKCCFAMERS-Case-01239484_AE-72638

PATIENT
  Age: 11 Year
  Sex: Female

DRUGS (1)
  1. PAXIL CR [Suspect]
     Active Substance: PAROXETINE HYDROCHLORIDE
     Indication: Product used for unknown indication
     Dosage: UNK
     Route: 065

REACTIONS (5)
  - Suicide attempt [Unknown]
  - Cachexia [Unknown]
  - Ill-defined disorder [Unknown]
  - Product prescribing error [Unknown]
  - Product use issue [Unknown]
